FAERS Safety Report 21088512 (Version 8)
Quarter: 2022Q4

REPORT INFORMATION
  Report Type: Report from Study
  Country: US (occurrence: US)
  Receive Date: 20220715
  Receipt Date: 20221209
  Transmission Date: 20230112
  Serious: Yes (Other)
  Sender: FDA-Public Use
  Company Number: US-AGIOS-2207US03084

PATIENT
  Sex: Male

DRUGS (3)
  1. MITAPIVAT [Interacting]
     Active Substance: MITAPIVAT
     Indication: Pyruvate kinase deficiency anaemia
     Dosage: 5 MILLIGRAM, BID
     Route: 048
     Dates: start: 20220514
  2. MITAPIVAT [Interacting]
     Active Substance: MITAPIVAT
     Dosage: 20 MILLIGRAM, BID
     Route: 048
     Dates: start: 20220515
  3. PHENOBARBITAL [Interacting]
     Active Substance: PHENOBARBITAL
     Indication: Seizure
     Route: 065

REACTIONS (8)
  - Seizure [Unknown]
  - Middle insomnia [Unknown]
  - Insomnia [Unknown]
  - Drug interaction [Unknown]
  - Sleep terror [Recovering/Resolving]
  - Haemoglobin decreased [Unknown]
  - Drug interaction [Unknown]
  - Anxiety [Unknown]
